FAERS Safety Report 8354683-4 (Version None)
Quarter: 2012Q2

REPORT INFORMATION
  Report Type: 
  Country: None (occurrence: None)
  Receive Date: 20120511
  Receipt Date: 20120502
  Transmission Date: 20120825
  Serious: Yes (Hospitalization)
  Sender: FDA-Public Use
  Company Number: JP-EISAI INC-E3810-05498-CLI-JP

PATIENT
  Sex: Male
  Weight: 55 kg

DRUGS (1)
  1. RABEPRAZOLE SODIUM [Suspect]
     Indication: PROPHYLAXIS AGAINST GASTROINTESTINAL ULCER
     Dosage: UNKNOWN
     Route: 048
     Dates: start: 20120327, end: 20120430

REACTIONS (1)
  - GASTROINTESTINAL HAEMORRHAGE [None]
